FAERS Safety Report 25390748 (Version 1)
Quarter: 2025Q2

REPORT INFORMATION
  Report Type: Spontaneous
  Country: US (occurrence: None)
  Receive Date: 20250603
  Receipt Date: 20250603
  Transmission Date: 20250717
  Serious: Yes (Hospitalization)
  Sender: FDA-CTU
  Company Number: None

PATIENT
  Age: 69 Year
  Sex: Female

DRUGS (12)
  1. MEKINIST [Suspect]
     Active Substance: TRAMETINIB DIMETHYL SULFOXIDE
     Indication: Malignant melanoma
     Dosage: FREQUENCY : DAILY;?
     Route: 048
     Dates: start: 20250531
  2. DABRAFENIB [Suspect]
     Active Substance: DABRAFENIB
  3. ADVAIR DISKU AER [Concomitant]
  4. ALBUTEROL [Concomitant]
     Active Substance: ALBUTEROL
  5. AMMONIUM LACTATE [Concomitant]
     Active Substance: AMMONIUM LACTATE
  6. AMLODIPINE TAB [Concomitant]
  7. ASPIRIN [Concomitant]
     Active Substance: ASPIRIN
  8. CELEXA [Concomitant]
     Active Substance: CITALOPRAM HYDROBROMIDE
  9. CLOTRIM/BETA CRE DIPROP [Concomitant]
  10. DIAZEPAM [Concomitant]
     Active Substance: DIAZEPAM
  11. DEXCOM [Concomitant]
  12. FENOFIBRATE [Concomitant]
     Active Substance: FENOFIBRATE

REACTIONS (4)
  - Nausea [None]
  - Drug intolerance [None]
  - Diarrhoea [None]
  - Fatigue [None]

NARRATIVE: CASE EVENT DATE: 20250505
